FAERS Safety Report 5194020-X (Version None)
Quarter: 2006Q4

REPORT INFORMATION
  Report Type: 
  Country: None (occurrence: None)
  Receive Date: 20061222
  Receipt Date: 20061211
  Transmission Date: 20070319
  Serious: Yes (Death)
  Sender: FDA-Public Use
  Company Number: 2006OCT001143

PATIENT
  Age: 74 Year
  Sex: Male
  Weight: 54.4 kg

DRUGS (11)
  1. VENTAVIS [Suspect]
     Indication: PULMONARY HYPERTENSION
     Dosage: 5 UG/7XD; INH
     Route: 055
     Dates: start: 20050603, end: 20061206
  2. TRACLEER [Concomitant]
  3. SILDENAFIL CITRATE [Concomitant]
  4. WARFARIN SODIUM [Concomitant]
  5. CENTRUM [Concomitant]
  6. LASIX [Concomitant]
  7. ADVAIR DISKUS 100/50 [Concomitant]
  8. SALBUTAMOL/IPRATROPIUM BROMIDE [Concomitant]
  9. POTASSIUM ACETATE [Concomitant]
  10. DIGOXIN [Concomitant]
  11. CALCIUM WITH VITAMIN D [Concomitant]

REACTIONS (6)
  - DISEASE PROGRESSION [None]
  - MYOCARDIAL INFARCTION [None]
  - OXYGEN SATURATION DECREASED [None]
  - PULMONARY HYPERTENSION [None]
  - PULSE ABSENT [None]
  - UNRESPONSIVE TO STIMULI [None]
